FAERS Safety Report 9002246 (Version 1)
Quarter: 2013Q1

REPORT INFORMATION
  Report Type: Spontaneous
  Country: AU (occurrence: AU)
  Receive Date: 20130107
  Receipt Date: 20130107
  Transmission Date: 20140127
  Serious: Yes (Other)
  Sender: FDA-Public Use
  Company Number: AU-PFIZER INC-2013002824

PATIENT
  Age: 50 Year
  Sex: Female
  Weight: 90 kg

DRUGS (1)
  1. CHAMPIX [Suspect]
     Dosage: 1 DOSE UNSPECIFIED, 2 TIMES
     Route: 048
     Dates: start: 20120704, end: 20120915

REACTIONS (3)
  - Hypoaesthesia [Unknown]
  - Hypoaesthesia oral [Unknown]
  - Pharyngeal hypoaesthesia [Unknown]
